FAERS Safety Report 6811035-3 (Version None)
Quarter: 2010Q2

REPORT INFORMATION
  Report Type: 
  Country: None (occurrence: None)
  Receive Date: 20100630
  Receipt Date: 20090127
  Transmission Date: 20101027
  Serious: No
  Sender: FDA-Public Use
  Company Number: US-PFIZER INC-2009164799

PATIENT
  Sex: Male
  Weight: 74.842 kg

DRUGS (1)
  1. NICOTROL [Suspect]
     Indication: SMOKING CESSATION THERAPY
     Dates: start: 20090101, end: 20090126

REACTIONS (1)
  - DRUG INEFFECTIVE [None]
